FAERS Safety Report 11334481 (Version 1)
Quarter: 2015Q3

REPORT INFORMATION
  Report Type: Spontaneous
  Country: MA (occurrence: MA)
  Receive Date: 20150804
  Receipt Date: 20150804
  Transmission Date: 20151125
  Serious: Yes (Death, Other)
  Sender: FDA-Public Use
  Company Number: MA-CELGENE-MAR-2015054282

PATIENT
  Age: 73 Year
  Sex: Male

DRUGS (1)
  1. POMALIDOMIDE [Suspect]
     Active Substance: POMALIDOMIDE
     Indication: MYELODYSPLASTIC SYNDROME
     Dosage: 4 MILLIGRAM
     Route: 048
     Dates: end: 20140406

REACTIONS (4)
  - Tumour lysis syndrome [Unknown]
  - Haematotoxicity [Fatal]
  - Sepsis [Unknown]
  - Acute myeloid leukaemia [Unknown]

NARRATIVE: CASE EVENT DATE: 20150621
